FAERS Safety Report 18417929 (Version 1)
Quarter: 2020Q4

REPORT INFORMATION
  Report Type: Report from Study
  Country: None (occurrence: CA)
  Receive Date: 20201023
  Receipt Date: 20201023
  Transmission Date: 20210114
  Serious: Yes (Hospitalization, Other)
  Sender: FDA-Public Use
  Company Number: CA-ABBVIE-20K-028-3615730-00

PATIENT
  Sex: Male

DRUGS (1)
  1. RINVOQ [Suspect]
     Active Substance: UPADACITINIB
     Indication: PRODUCT USED FOR UNKNOWN INDICATION
     Route: 048
     Dates: start: 202008, end: 2020

REACTIONS (3)
  - Tendon rupture [Not Recovered/Not Resolved]
  - Accident at work [Unknown]
  - Knee operation [Recovering/Resolving]

NARRATIVE: CASE EVENT DATE: 2020
